FAERS Safety Report 10101639 (Version 1)
Quarter: 2014Q2

REPORT INFORMATION
  Report Type: Spontaneous
  Country: ES (occurrence: ES)
  Receive Date: 20140424
  Receipt Date: 20140424
  Transmission Date: 20141212
  Serious: Yes (Hospitalization, Other)
  Sender: FDA-Public Use
  Company Number: ES-ROXANE LABORATORIES, INC.-2014-RO-00633RO

PATIENT
  Age: 68 Year
  Sex: Male

DRUGS (2)
  1. METHOTREXATE [Suspect]
     Indication: RHEUMATOID ARTHRITIS
     Route: 048
     Dates: start: 2008
  2. FOLATE [Suspect]
     Indication: SUPPLEMENTATION THERAPY
     Route: 065
     Dates: start: 2008

REACTIONS (7)
  - Leukoencephalopathy [Not Recovered/Not Resolved]
  - Cardiac failure [Unknown]
  - Atrial fibrillation [Unknown]
  - Pleural effusion [Unknown]
  - Spotted fever rickettsia test positive [Recovered/Resolved]
  - Pleurisy [Unknown]
  - Chronic obstructive pulmonary disease [Recovered/Resolved]
